FAERS Safety Report 8125169-7 (Version None)
Quarter: 2012Q1

REPORT INFORMATION
  Report Type: 
  Country: None (occurrence: None)
  Receive Date: 20120209
  Receipt Date: 20120206
  Transmission Date: 20120608
  Serious: Yes (Other)
  Sender: FDA-Public Use
  Company Number: IT-BAYER-2012-012609

PATIENT
  Age: 77 Year
  Sex: Male

DRUGS (1)
  1. ULTRAVIST 150 [Suspect]
     Indication: COMPUTERISED TOMOGRAM
     Dosage: 120 ML, ONCE
     Route: 042
     Dates: start: 20111124, end: 20111124

REACTIONS (12)
  - RASH PAPULAR [None]
  - FEELING HOT [None]
  - HYPOTENSION [None]
  - RASH GENERALISED [None]
  - FEELING COLD [None]
  - FLUSHING [None]
  - VISUAL IMPAIRMENT [None]
  - MALAISE [None]
  - VASODILATATION [None]
  - RASH [None]
  - ERYTHEMA [None]
  - PRURITUS [None]
